FAERS Safety Report 6755818-7 (Version None)
Quarter: 2010Q2

REPORT INFORMATION
  Report Type: 
  Country: None (occurrence: None)
  Receive Date: 20100604
  Receipt Date: 20100525
  Transmission Date: 20101027
  Serious: Yes (Other)
  Sender: FDA-Public Use
  Company Number: US-ABBOTT-10P-163-0647284-00

PATIENT
  Age: 67 Year
  Sex: Female

DRUGS (10)
  1. HUMIRA [Suspect]
     Indication: RHEUMATOID ARTHRITIS
     Route: 058
     Dates: start: 20070101
  2. CELEBREX [Concomitant]
     Indication: RHEUMATOID ARTHRITIS
  3. PREDNISONE TAB [Concomitant]
     Indication: RHEUMATOID ARTHRITIS
  4. NEXIUM [Concomitant]
     Indication: GASTROOESOPHAGEAL REFLUX DISEASE
  5. PREVACID [Concomitant]
     Indication: GASTROOESOPHAGEAL REFLUX DISEASE
  6. DITROPAN XL [Concomitant]
     Indication: NEUROGENIC BLADDER
  7. LISINOPRIL [Concomitant]
     Indication: HYPERTENSION
  8. PERCOCET [Concomitant]
     Indication: BREAKTHROUGH PAIN
     Dosage: 5/325MG
  9. OXYCONTIN [Concomitant]
     Indication: PAIN
  10. VAGIFEM [Concomitant]
     Indication: DRUG USE FOR UNKNOWN INDICATION

REACTIONS (2)
  - EMPHYSEMA [None]
  - OSTEOARTHRITIS [None]
